FAERS Safety Report 19359915 (Version 1)
Quarter: 2021Q2

REPORT INFORMATION
  Report Type: Spontaneous
  Country: IT (occurrence: IT)
  Receive Date: 20210601
  Receipt Date: 20210601
  Transmission Date: 20210717
  Serious: Yes (Other)
  Sender: FDA-Public Use
  Company Number: IT-ASTELLAS-2021US019430

PATIENT
  Age: 82 Year
  Sex: Male

DRUGS (3)
  1. RADIUM RA 223 DICHLORIDE [Suspect]
     Active Substance: RADIUM RA-223 DICHLORIDE
     Indication: MALIGNANT NEOPLASM PROGRESSION
     Dosage: 6 INTRAVENOUS INJECTIONS AT A STANDARD DOSE OF 55 KBQ/KG, EVERY 4 WEEKS
     Route: 042
     Dates: start: 201806, end: 201812
  2. TRIPTORELIN [Concomitant]
     Active Substance: TRIPTORELIN
     Indication: PROSTATE CANCER
     Dosage: UNK UNK, UNKNOWN FREQ.
     Route: 065
  3. ENZALUTAMIDE [Suspect]
     Active Substance: ENZALUTAMIDE
     Indication: PROSTATE CANCER
     Dosage: UNK UNK, UNKNOWN FREQ.
     Route: 065

REACTIONS (1)
  - Acute promyelocytic leukaemia [Recovered/Resolved]
